FAERS Safety Report 4359239-6 (Version None)
Quarter: 2004Q2

REPORT INFORMATION
  Report Type: 
  Country: None (occurrence: None)
  Receive Date: 20040512
  Receipt Date: 20040428
  Transmission Date: 20050107
  Serious: Yes (Other)
  Sender: FDA-Public Use
  Company Number: 04-154-0292

PATIENT

DRUGS (2)
  1. EPHEDRINE SULFATE INJ., 50 MG/ML; BENVENUE LABS [Suspect]
  2. KETOROLAC INJ, 30MG/1ML, BEN VENUE LABS [Suspect]

REACTIONS (1)
  - MEDICATION ERROR [None]
